FAERS Safety Report 20300939 (Version 1)
Quarter: 2022Q1

REPORT INFORMATION
  Report Type: Spontaneous
  Country: US (occurrence: None)
  Receive Date: 20220105
  Receipt Date: 20220105
  Transmission Date: 20220423
  Serious: Yes (Other)
  Sender: FDA-Public Use
  Company Number: None

PATIENT
  Age: 73 Year
  Sex: Male
  Weight: 95 kg

DRUGS (4)
  1. PRIVIGEN [Suspect]
     Active Substance: HUMAN IMMUNOGLOBULIN G
     Indication: Chronic inflammatory demyelinating polyradiculoneuropathy
     Dosage: OTHER FREQUENCY : EVERY OTHER WEEK;?
     Route: 042
  2. PRIVIGEN [Suspect]
     Active Substance: HUMAN IMMUNOGLOBULIN G
     Indication: Chronic inflammatory demyelinating polyradiculoneuropathy
     Dosage: OTHER FREQUENCY : EVERY OTHER WEEK;?
     Route: 042
  3. Privigen 10gm/100ml Lot: P100355519 Exp: 6/27/24 [Concomitant]
     Dates: start: 20190628, end: 20211227
  4. Privigen 5gm/50ml Lot: P100287718 Exp: 11/15/2023 [Concomitant]
     Dates: start: 20190628, end: 20211227

REACTIONS (2)
  - Urticaria [None]
  - Urticaria [None]

NARRATIVE: CASE EVENT DATE: 20211227
